FAERS Safety Report 6355645-9 (Version None)
Quarter: 2009Q3

REPORT INFORMATION
  Report Type: 
  Country: None (occurrence: None)
  Receive Date: 20090910
  Receipt Date: 20090827
  Transmission Date: 20100115
  Serious: Yes (Death, Hospitalization)
  Sender: FDA-Public Use
  Company Number: ADR18872009

PATIENT
  Age: 84 Year
  Sex: Female

DRUGS (2)
  1. ALENDRONATE SODIUM [Suspect]
     Indication: OSTEOPOROSIS
     Dosage: ORAL
     Route: 048
  2. FOSAMAX [Concomitant]

REACTIONS (3)
  - DEHYDRATION [None]
  - FALL [None]
  - OESOPHAGITIS [None]
